FAERS Safety Report 6466711-1 (Version None)
Quarter: 2009Q4

REPORT INFORMATION
  Report Type: 
  Country: None (occurrence: None)
  Receive Date: 20091202
  Receipt Date: 20091124
  Transmission Date: 20100525
  Serious: Yes (Hospitalization, Other)
  Sender: FDA-Public Use
  Company Number: AT-BAYER-200921952GPV

PATIENT
  Age: 43 Year
  Sex: Female

DRUGS (2)
  1. MIRENA [Suspect]
     Indication: CONTRACEPTION
     Route: 015
     Dates: start: 20010808, end: 20060913
  2. MIRENA [Suspect]
     Route: 015
     Dates: start: 20060913, end: 20090529

REACTIONS (10)
  - ABDOMINAL PAIN [None]
  - ABDOMINAL PAIN LOWER [None]
  - CARCINOID SYNDROME [None]
  - CARCINOID TUMOUR [None]
  - DIARRHOEA [None]
  - FOCAL NODULAR HYPERPLASIA [None]
  - HYPOTHYROIDISM [None]
  - METASTASES TO LIVER [None]
  - NAUSEA [None]
  - RENAL IMPAIRMENT [None]
